FAERS Safety Report 8208616-1 (Version None)
Quarter: 2012Q1

REPORT INFORMATION
  Report Type: 
  Country: None (occurrence: None)
  Receive Date: 20120314
  Receipt Date: 20120305
  Transmission Date: 20120608
  Serious: Yes (Death, Life-Threatening)
  Sender: FDA-Public Use
  Company Number: JP-ROCHE-1005839

PATIENT
  Age: 83 Year
  Sex: Male

DRUGS (16)
  1. ALTEPLASE [Suspect]
     Indication: EMBOLIC STROKE
     Route: 042
     Dates: start: 20110910, end: 20110910
  2. GLYCEROL 2.6% [Concomitant]
     Route: 051
     Dates: start: 20110910, end: 20110913
  3. LASIX [Concomitant]
     Route: 051
     Dates: start: 20110912, end: 20110912
  4. ASPIRIN [Concomitant]
     Route: 048
     Dates: start: 20040119
  5. NEOLAMIN 3 B [Concomitant]
     Dosage: 1 AMP
     Route: 051
     Dates: start: 20110910, end: 20110925
  6. VERAPAMIL HCL [Concomitant]
     Route: 048
     Dates: start: 20110912, end: 20110912
  7. LAC B [Concomitant]
     Route: 048
     Dates: start: 20110919, end: 20110925
  8. DISOPYRAMIDE PHOSPHATE [Concomitant]
     Route: 051
     Dates: start: 20110912, end: 20110912
  9. EDARAVONE [Suspect]
     Indication: EMBOLIC STROKE
     Route: 041
     Dates: start: 20110910, end: 20110920
  10. INSULIN [Concomitant]
     Route: 051
  11. NOVOLIN R [Concomitant]
     Route: 051
     Dates: start: 20110911, end: 20110925
  12. ENTERONON [Concomitant]
     Dates: start: 20110919, end: 20110925
  13. HEPARIN SODIUM [Suspect]
     Indication: EMBOLIC STROKE
     Dosage: 10000UNITS/10ML, DAILY DOSE: UNKNOWN
     Route: 041
     Dates: start: 20110911, end: 20110912
  14. KAYTWO N [Concomitant]
     Route: 051
     Dates: start: 20110910, end: 20110910
  15. HALOPERIDOL [Concomitant]
     Dosage: 2 AMP
     Route: 051
     Dates: start: 20110911, end: 20110911
  16. LANIRAPID [Concomitant]
     Route: 048
     Dates: start: 20110912, end: 20110925

REACTIONS (4)
  - HAEMORRHAGE INTRACRANIAL [None]
  - PNEUMONIA [None]
  - URINARY TRACT INFECTION [None]
  - DISSEMINATED INTRAVASCULAR COAGULATION [None]
